FAERS Safety Report 17553246 (Version 3)
Quarter: 2023Q4

REPORT INFORMATION
  Report Type: Spontaneous
  Country: US (occurrence: None)
  Receive Date: 20200318
  Receipt Date: 20231222
  Transmission Date: 20240109
  Serious: Yes (Hospitalization, Other)
  Sender: FDA-Public Use
  Company Number: 2020SE36893

PATIENT
  Age: 655 Month
  Sex: Female
  Weight: 93 kg

DRUGS (52)
  1. XIGDUO XR [Suspect]
     Active Substance: DAPAGLIFLOZIN PROPANEDIOL\METFORMIN HYDROCHLORIDE
     Indication: Type 2 diabetes mellitus
     Route: 048
     Dates: start: 20150630, end: 201602
  2. XIGDUO XR [Suspect]
     Active Substance: DAPAGLIFLOZIN PROPANEDIOL\METFORMIN HYDROCHLORIDE
     Indication: Type 2 diabetes mellitus
     Route: 048
     Dates: start: 20150929
  3. XIGDUO XR [Suspect]
     Active Substance: DAPAGLIFLOZIN PROPANEDIOL\METFORMIN HYDROCHLORIDE
     Indication: Type 2 diabetes mellitus
     Dosage: 10-500 MG
     Route: 048
     Dates: start: 20151214
  4. XIGDUO XR [Suspect]
     Active Substance: DAPAGLIFLOZIN PROPANEDIOL\METFORMIN HYDROCHLORIDE
     Indication: Type 2 diabetes mellitus
     Route: 048
     Dates: start: 201506, end: 201512
  5. XIGDUO XR [Suspect]
     Active Substance: DAPAGLIFLOZIN PROPANEDIOL\METFORMIN HYDROCHLORIDE
     Indication: Type 2 diabetes mellitus
     Route: 048
     Dates: start: 201506, end: 201603
  6. LISINOPRIL [Concomitant]
     Active Substance: LISINOPRIL
  7. METFORMIN [Concomitant]
     Active Substance: METFORMIN HYDROCHLORIDE
  8. UNSPECIFIED INGREDIENT [Concomitant]
     Active Substance: UNSPECIFIED INGREDIENT
  9. GLIPIZIDE [Concomitant]
     Active Substance: GLIPIZIDE
  10. SERTRALINE [Concomitant]
     Active Substance: SERTRALINE HYDROCHLORIDE
  11. CLINDAMYCIN [Concomitant]
     Active Substance: CLINDAMYCIN
  12. HYDROCOD [Concomitant]
  13. LEVEMIR [Concomitant]
     Active Substance: INSULIN DETEMIR
  14. LANTUS [Concomitant]
     Active Substance: INSULIN GLARGINE
  15. ATORVASTATIN [Concomitant]
     Active Substance: ATORVASTATIN
  16. ASPIRIN [Concomitant]
     Active Substance: ASPIRIN
  17. NAPROXEN SODIUM [Concomitant]
     Active Substance: NAPROXEN\NAPROXEN SODIUM
  18. DAPAGLIFLOZIN [Concomitant]
     Active Substance: DAPAGLIFLOZIN
  19. VANCOMYCIN [Concomitant]
     Active Substance: VANCOMYCIN
  20. SODIUM CHLORIDE [Concomitant]
     Active Substance: SODIUM CHLORIDE
  21. NICOTINE [Concomitant]
     Active Substance: NICOTINE
  22. MENTHOL [Concomitant]
     Active Substance: MENTHOL
  23. ZOFRAN [Concomitant]
     Active Substance: ONDANSETRON HYDROCHLORIDE
  24. LORTAB [Concomitant]
     Active Substance: ACETAMINOPHEN\HYDROCODONE BITARTRATE
  25. EXCEDRIN MIGRAINE [Concomitant]
     Active Substance: ACETAMINOPHEN\ASPIRIN\CAFFEINE
  26. CALMOSEPTINE [Concomitant]
     Active Substance: MENTHOL\ZINC OXIDE
  27. DOCUSATE SODIUM [Concomitant]
     Active Substance: DOCUSATE SODIUM
  28. AMOXICILLIN\CLAVULANIC ACID [Concomitant]
     Active Substance: AMOXICILLIN\CLAVULANIC ACID
  29. XYLOCAINE [Concomitant]
     Active Substance: LIDOCAINE HYDROCHLORIDE
  30. MAGNESIUM HYDROXIDE [Concomitant]
     Active Substance: MAGNESIUM HYDROXIDE
  31. DEXTROSE [Concomitant]
     Active Substance: DEXTROSE\DEXTROSE MONOHYDRATE
  32. ADACEL TDAP [Concomitant]
     Active Substance: TETANUS TOXOID, REDUCED DIPHTHERIA TOXOID AND ACELLULAR PERTUSSIS VACCINE ADSORBED, TDAP
  33. GLUCAGEN [Concomitant]
     Active Substance: GLUCAGON HYDROCHLORIDE
  34. HUMALOG [Concomitant]
     Active Substance: INSULIN LISPRO
  35. MORPHINE [Concomitant]
     Active Substance: MORPHINE
  36. PNEUMOVAX 23 [Concomitant]
     Active Substance: PNEUMOCOCCAL VACCINE, POLYVALENT 23
  37. ZOSYN [Concomitant]
     Active Substance: PIPERACILLIN SODIUM\TAZOBACTAM SODIUM
  38. ACETAMINOPHEN [Concomitant]
     Active Substance: ACETAMINOPHEN
  39. BISACODYL [Concomitant]
     Active Substance: BISACODYL
  40. EXCEDRIN [Concomitant]
     Active Substance: ACETAMINOPHEN\ASPIRIN\CAFFEINE
  41. SENNA [Concomitant]
     Active Substance: SENNA LEAF\SENNOSIDES\SENNOSIDES A AND B
  42. ARGINAID [Concomitant]
  43. ZOLOFT [Concomitant]
     Active Substance: SERTRALINE HYDROCHLORIDE
  44. FLEET ENEMA [Concomitant]
     Active Substance: SODIUM PHOSPHATE, DIBASIC\SODIUM PHOSPHATE, MONOBASIC
  45. FLONASE [Concomitant]
     Active Substance: FLUTICASONE PROPIONATE
  46. AUGMENTIN [Concomitant]
     Active Substance: AMOXICILLIN\CLAVULANATE POTASSIUM
  47. ALBUTEROL [Concomitant]
     Active Substance: ALBUTEROL
  48. AMMONIUM CHLORIDE\DEXTROMETHORPHAN\SODIUM CITRATE [Concomitant]
     Active Substance: AMMONIUM CHLORIDE\DEXTROMETHORPHAN\SODIUM CITRATE
  49. HYDROCHLOROTHIAZIDE\LISINOPRIL [Concomitant]
     Active Substance: HYDROCHLOROTHIAZIDE\LISINOPRIL
  50. SERTRALINE [Concomitant]
     Active Substance: SERTRALINE HYDROCHLORIDE
  51. CEPHALEXIN [Concomitant]
     Active Substance: CEPHALEXIN
  52. LOVASTATIN [Concomitant]
     Active Substance: LOVASTATIN

REACTIONS (14)
  - Fournier^s gangrene [Unknown]
  - Sepsis [Unknown]
  - Abscess limb [Unknown]
  - Necrotising fasciitis [Unknown]
  - Perineal cellulitis [Unknown]
  - Leukocytosis [Unknown]
  - Cellulitis [Unknown]
  - Perineal abscess [Unknown]
  - Abscess [Unknown]
  - Perirectal abscess [Unknown]
  - Vulval abscess [Unknown]
  - Anal abscess [Unknown]
  - Genital abscess [Unknown]
  - Post-traumatic stress disorder [Unknown]

NARRATIVE: CASE EVENT DATE: 20160201
